FAERS Safety Report 4624837-9 (Version None)
Quarter: 2005Q2

REPORT INFORMATION
  Report Type: 
  Country: None (occurrence: None)
  Receive Date: 20050325
  Receipt Date: 20050120
  Transmission Date: 20051028
  Serious: No
  Sender: FDA-Public Use
  Company Number: USA050187469

PATIENT
  Age: 65 Year
  Sex: Female
  Weight: 55 kg

DRUGS (1)
  1. FORTEO [Suspect]
     Indication: OSTEOPOROSIS
     Dates: start: 20041230

REACTIONS (9)
  - ABDOMINAL PAIN UPPER [None]
  - ANOREXIA [None]
  - ASTHENIA [None]
  - DIZZINESS [None]
  - INSOMNIA [None]
  - MUSCLE SPASMS [None]
  - STRESS [None]
  - TREMOR [None]
  - WEIGHT DECREASED [None]
